FAERS Safety Report 20526452 (Version 1)
Quarter: 2022Q1

REPORT INFORMATION
  Report Type: Report from Study
  Country: US (occurrence: US)
  Receive Date: 20220228
  Receipt Date: 20220228
  Transmission Date: 20220423
  Serious: No
  Sender: FDA-Public Use
  Company Number: US-HRARD-2021001316

PATIENT
  Sex: Female

DRUGS (11)
  1. METOPIRONE [Suspect]
     Active Substance: METYRAPONE
     Route: 048
  2. AFINITOR [Concomitant]
     Active Substance: EVEROLIMUS
  3. FAMOTIDINE [Concomitant]
     Active Substance: FAMOTIDINE
  4. KEPPRA [Concomitant]
     Active Substance: LEVETIRACETAM
  5. KETOCONAZOLE [Concomitant]
     Active Substance: KETOCONAZOLE
  6. METOPROLOL [Concomitant]
     Active Substance: METOPROLOL
  7. Olmesa [Concomitant]
  8. ROBITUSSIN (GUAIFENESIN) [Concomitant]
     Active Substance: GUAIFENESIN
  9. SPIRONOLACTONE [Concomitant]
     Active Substance: SPIRONOLACTONE
  10. TYLENOL [Concomitant]
     Active Substance: ACETAMINOPHEN
  11. Virtussin [Concomitant]

REACTIONS (1)
  - Off label use [Not Recovered/Not Resolved]
